FAERS Safety Report 5751472-1 (Version None)
Quarter: 2008Q2

REPORT INFORMATION
  Report Type: 
  Country: None (occurrence: None)
  Receive Date: 20080527
  Receipt Date: 20080514
  Transmission Date: 20081010
  Serious: Yes (Hospitalization)
  Sender: FDA-Public Use
  Company Number: 2008BI009349

PATIENT
  Age: 62 Year
  Sex: Female

DRUGS (1)
  1. TYSABRI [Suspect]
     Indication: MULTIPLE SCLEROSIS
     Dosage: 300 MG:QM:IV
     Route: 042
     Dates: start: 20071121

REACTIONS (4)
  - BACTERAEMIA [None]
  - CELLULITIS [None]
  - PYREXIA [None]
  - URINARY TRACT INFECTION [None]
